FAERS Safety Report 7090099-9 (Version None)
Quarter: 2010Q4

REPORT INFORMATION
  Report Type: 
  Country: None (occurrence: None)
  Receive Date: 20101109
  Receipt Date: 20101102
  Transmission Date: 20110411
  Serious: Yes (Other)
  Sender: FDA-Public Use
  Company Number: JP-BAYER-201044653GPV

PATIENT
  Age: 69 Year
  Sex: Male

DRUGS (3)
  1. CIPROFLOXACIN [Suspect]
     Indication: MYCOBACTERIUM ABSCESSUS INFECTION
  2. IMMUNOSUPPRESSANTS NOS [Concomitant]
     Indication: BLADDER CANCER
  3. BCG INSTILLATION [Concomitant]
     Indication: BLADDER TRANSITIONAL CELL CARCINOMA

REACTIONS (5)
  - ANAL FISTULA [None]
  - BLADDER IRRITATION [None]
  - PROSTATIC ABSCESS [None]
  - PROSTATITIS [None]
  - PYREXIA [None]
